FAERS Safety Report 10397147 (Version 2)
Quarter: 2014Q3

REPORT INFORMATION
  Report Type: Spontaneous
  Country: JP (occurrence: JP)
  Receive Date: 20140820
  Receipt Date: 20140923
  Transmission Date: 20150326
  Serious: Yes (Other)
  Sender: FDA-Public Use
  Company Number: PHHY2011JP122173

PATIENT
  Age: 63 Year
  Sex: Male

DRUGS (4)
  1. AFINITOR [Suspect]
     Active Substance: EVEROLIMUS
     Dates: start: 201304
  2. AFINITOR [Suspect]
     Active Substance: EVEROLIMUS
     Indication: METASTATIC RENAL CELL CARCINOMA
     Dates: start: 201109
  3. AFINITOR [Suspect]
     Active Substance: EVEROLIMUS
     Dates: start: 201205
  4. ZOLEDRONIC ACID [Concomitant]
     Active Substance: ZOLEDRONIC ACID
     Indication: METASTATIC RENAL CELL CARCINOMA
     Dates: start: 201109, end: 201301

REACTIONS (8)
  - Cough [Unknown]
  - Metastases to lung [Unknown]
  - C-reactive protein increased [Unknown]
  - Osteonecrosis of jaw [Unknown]
  - Lung disorder [Unknown]
  - Haemoglobin decreased [Unknown]
  - Metastases to bone [Unknown]
  - Drug ineffective [Unknown]
